FAERS Safety Report 6026407-7 (Version None)
Quarter: 2009Q1

REPORT INFORMATION
  Report Type: 
  Country: None (occurrence: None)
  Receive Date: 20090102
  Receipt Date: 20081223
  Transmission Date: 20090719
  Serious: Yes (Other)
  Sender: FDA-Public Use
  Company Number: BE-ABBOTT-07P-013-0366223-00

PATIENT
  Sex: Female

DRUGS (10)
  1. HUMIRA [Suspect]
     Indication: RHEUMATOID ARTHRITIS
     Route: 058
     Dates: start: 20060125, end: 20061129
  2. ARAVA [Concomitant]
     Indication: RHEUMATOID ARTHRITIS
  3. FELDENE [Concomitant]
     Indication: RHEUMATOID ARTHRITIS
     Dosage: AS LITTLE AS POSSIBLE
  4. DIOVANE [Concomitant]
     Indication: DRUG USE FOR UNKNOWN INDICATION
     Dosage: 160/12.5 MG
  5. MEDROL [Concomitant]
     Indication: DRUG USE FOR UNKNOWN INDICATION
  6. CACIT D3 [Concomitant]
     Indication: DRUG USE FOR UNKNOWN INDICATION
  7. DAFLON [Concomitant]
     Indication: DRUG USE FOR UNKNOWN INDICATION
  8. NEXIUM [Concomitant]
     Indication: DRUG USE FOR UNKNOWN INDICATION
  9. PENTASA [Concomitant]
     Indication: PROPHYLAXIS
  10. DAFALGAN [Concomitant]
     Indication: DRUG USE FOR UNKNOWN INDICATION
     Dosage: MAX 3 GRAM PER DAY

REACTIONS (3)
  - ARTHRITIS [None]
  - C-REACTIVE PROTEIN ABNORMAL [None]
  - INFLAMMATORY PAIN [None]
